FAERS Safety Report 4986996-8 (Version None)
Quarter: 2006Q2

REPORT INFORMATION
  Report Type: 
  Country: None (occurrence: None)
  Receive Date: 20060501
  Receipt Date: 20060426
  Transmission Date: 20061013
  Serious: Yes (Death)
  Sender: FDA-Public Use
  Company Number: ZA-BOEHRINGER INGELHEIM PHARMACEUTICALS, INC.-2006-BP-04767BP

PATIENT
  Sex: Male
  Weight: 8 kg

DRUGS (4)
  1. VIRAMUNE [Suspect]
     Indication: HIV INFECTION
     Dates: start: 20060412
  2. LAMIVUDINE [Concomitant]
     Indication: HIV INFECTION
     Dates: start: 20050928
  3. STAVUDINE [Concomitant]
     Indication: HIV INFECTION
     Dates: start: 20050928
  4. CO-TRIMOXAZOLE [Concomitant]

REACTIONS (4)
  - DEATH [None]
  - GASTROENTERITIS [None]
  - PURPURA [None]
  - UPPER RESPIRATORY TRACT INFECTION [None]
